FAERS Safety Report 4977462-4 (Version None)
Quarter: 2006Q2

REPORT INFORMATION
  Report Type: 
  Country: None (occurrence: None)
  Receive Date: 20060413
  Receipt Date: 20060406
  Transmission Date: 20061013
  Serious: Yes (Hospitalization)
  Sender: FDA-Public Use
  Company Number: 2006035537

PATIENT
  Age: 90 Year
  Sex: Female
  Weight: 65 kg

DRUGS (7)
  1. ALDACTONE [Suspect]
     Indication: ESSENTIAL HYPERTENSION
     Dosage: 75 MG (75 MG, 1 IN 1 D), ORAL
     Route: 048
     Dates: start: 19750101, end: 20051222
  2. PANTOPRAZOLE SODIUM [Suspect]
     Indication: ILL-DEFINED DISORDER
     Dosage: 40 MG (40 MG, 1 IN 1 D), ORAL
     Route: 048
     Dates: end: 20051220
  3. SECTRAL [Suspect]
     Indication: ESSENTIAL HYPERTENSION
     Dosage: 200 + 400 MG (DAILY), ORAL
     Route: 048
     Dates: start: 19750101, end: 20051216
  4. SECTRAL [Suspect]
     Indication: ESSENTIAL HYPERTENSION
     Dosage: 200 + 400 MG (DAILY), ORAL
     Route: 048
     Dates: start: 20051216
  5. TRIVASTAL (PIRIBEDIL) [Suspect]
     Indication: COGNITIVE DISORDER
     Dosage: (50 MG), ORAL
     Route: 048
     Dates: end: 20051222
  6. TRIVASTAL (PIRIBEDIL) [Suspect]
     Indication: NERVOUS SYSTEM DISORDER
     Dosage: (50 MG), ORAL
     Route: 048
     Dates: end: 20051222
  7. KARDEGIC (ACETYLSALICYLATE LYSINE) [Suspect]
     Indication: MYOCARDIAL ISCHAEMIA
     Dosage: 75 MG (75 MG, 1 IN 1D), ORAL
     Route: 048

REACTIONS (15)
  - AGITATION [None]
  - COGNITIVE DISORDER [None]
  - CONFUSIONAL STATE [None]
  - DIFFICULTY IN WALKING [None]
  - DISORIENTATION [None]
  - DUODENAL ULCER [None]
  - DYSPRAXIA [None]
  - ESCHERICHIA URINARY TRACT INFECTION [None]
  - FALL [None]
  - GASTRITIS [None]
  - HAEMOGLOBIN DECREASED [None]
  - HALLUCINATION, VISUAL [None]
  - IMPAIRED SELF-CARE [None]
  - MALNUTRITION [None]
  - MUSCLE RIGIDITY [None]
